FAERS Safety Report 6229941-X (Version None)
Quarter: 2009Q2

REPORT INFORMATION
  Report Type: 
  Country: None (occurrence: None)
  Receive Date: 20090615
  Receipt Date: 20090605
  Transmission Date: 20091009
  Serious: Yes (Hospitalization)
  Sender: FDA-Public Use
  Company Number: TR-ELI_LILLY_AND_COMPANY-TR200906001930

PATIENT
  Age: 66 Year
  Sex: Male

DRUGS (3)
  1. HUMALOG MIX 75/25 [Suspect]
     Indication: DIABETES MELLITUS
     Dosage: 90 IU, DAILY (1/D)
     Route: 058
     Dates: end: 20090101
  2. NOVORAPID [Concomitant]
     Indication: DIABETES MELLITUS
     Dosage: 56 IU, DAILY (1/D)
     Dates: start: 20090101
  3. LANTUS [Concomitant]
     Indication: DIABETES MELLITUS
     Dosage: 28 IU, DAILY (1/D)
     Dates: start: 20090101

REACTIONS (1)
  - HEPATIC STEATOSIS [None]
